FAERS Safety Report 6594035-0 (Version None)
Quarter: 2010Q1

REPORT INFORMATION
  Report Type: 
  Country: None (occurrence: None)
  Receive Date: 20100212
  Receipt Date: 20100128
  Transmission Date: 20100710
  Serious: Yes (Hospitalization, Other)
  Sender: FDA-Public Use
  Company Number: 2009-189179-NL

PATIENT
  Age: 25 Year
  Sex: Female
  Weight: 52.2 kg

DRUGS (9)
  1. NUVARING [Suspect]
     Indication: CONTRACEPTION
     Dosage: VAG
     Route: 067
     Dates: start: 19950901, end: 20061223
  2. AMBIEN (CON.) [Concomitant]
  3. CELEXA (CON.) [Concomitant]
  4. XANAX (CON.) [Concomitant]
  5. VIOXX (CON.) [Concomitant]
  6. AMERGE (CON.) [Concomitant]
  7. EFFEXOR XR (CON.) [Concomitant]
  8. TOPAMAX (CON.) [Concomitant]
  9. RELPAX (CON.) [Concomitant]

REACTIONS (21)
  - ALOPECIA [None]
  - ANXIETY [None]
  - BALANCE DISORDER [None]
  - CENTRAL NERVOUS SYSTEM LESION [None]
  - CEREBROVASCULAR ACCIDENT [None]
  - COGNITIVE DISORDER [None]
  - DEPRESSION [None]
  - DRY SKIN [None]
  - EPISTAXIS [None]
  - FATIGUE [None]
  - INSOMNIA [None]
  - MAJOR DEPRESSION [None]
  - MIGRAINE [None]
  - MUSCULAR WEAKNESS [None]
  - NAUSEA [None]
  - PHARYNGITIS [None]
  - RASH [None]
  - SOCIAL PHOBIA [None]
  - URINARY TRACT INFECTION [None]
  - VASOSPASM [None]
  - VIRAL INFECTION [None]
